FAERS Safety Report 6738581-5 (Version None)
Quarter: 2010Q2

REPORT INFORMATION
  Report Type: 
  Country: None (occurrence: None)
  Receive Date: 20100524
  Receipt Date: 20100512
  Transmission Date: 20101027
  Serious: Yes (Death, Other)
  Sender: FDA-Public Use
  Company Number: JP-PFIZER INC-2010061298

PATIENT
  Age: 81 Year
  Sex: Male

DRUGS (3)
  1. MYCOBUTIN [Suspect]
     Indication: MYCOBACTERIUM AVIUM COMPLEX INFECTION
     Dosage: UNK MG, UNK
     Route: 048
     Dates: start: 20091021, end: 20100109
  2. CLARITHROMYCIN [Concomitant]
     Route: 048
  3. CRAVIT [Concomitant]
     Route: 048

REACTIONS (2)
  - CONDITION AGGRAVATED [None]
  - MYCOBACTERIUM AVIUM COMPLEX INFECTION [None]
